FAERS Safety Report 13998174 (Version 1)
Quarter: 2017Q3

REPORT INFORMATION
  Report Type: Spontaneous
  Country: US (occurrence: US)
  Receive Date: 20170921
  Receipt Date: 20170921
  Transmission Date: 20171128
  Serious: No
  Sender: FDA-Public Use
  Company Number: US-FRESENIUS KABI-FK201707835

PATIENT
  Age: 67 Year
  Sex: Male

DRUGS (1)
  1. CHORIONIC GONADOTROPIN [Suspect]
     Active Substance: CHORIOGONADOTROPIN ALFA
     Indication: HYPOTHALAMO-PITUITARY DISORDER
     Route: 030
     Dates: start: 1987

REACTIONS (4)
  - Feeling abnormal [Recovering/Resolving]
  - Pain [Recovering/Resolving]
  - Drug effect decreased [Recovering/Resolving]
  - Back pain [Recovering/Resolving]

NARRATIVE: CASE EVENT DATE: 20170904
